FAERS Safety Report 8318559-0 (Version None)
Quarter: 2012Q2

REPORT INFORMATION
  Report Type: 
  Country: None (occurrence: None)
  Receive Date: 20120427
  Receipt Date: 20120419
  Transmission Date: 20120825
  Serious: Yes (Other)
  Sender: FDA-Public Use
  Company Number: US-ELI_LILLY_AND_COMPANY-US201204007607

PATIENT
  Sex: Female

DRUGS (2)
  1. CYMBALTA [Suspect]
     Dosage: 30 MG, QD
  2. GABAPENTIN [Concomitant]

REACTIONS (4)
  - EYE DISORDER [None]
  - EYE OPERATION [None]
  - VOMITING [None]
  - ASTHENIA [None]
